FAERS Safety Report 22541965 (Version 2)
Quarter: 2023Q2

REPORT INFORMATION
  Report Type: Spontaneous
  Country: US (occurrence: US)
  Receive Date: 20230609
  Receipt Date: 20230623
  Transmission Date: 20230722
  Serious: Yes (Hospitalization, Other)
  Sender: FDA-Public Use
  Company Number: US-002147023-NVSC2023US128064

PATIENT
  Sex: Female

DRUGS (1)
  1. ZOMETA [Suspect]
     Active Substance: ZOLEDRONIC ACID
     Indication: Product used for unknown indication
     Dosage: UNK UNK, ONCE/SINGLE
     Route: 065
     Dates: end: 20190109

REACTIONS (9)
  - Psychotic disorder [Unknown]
  - Diabetes mellitus [Unknown]
  - Delirium [Unknown]
  - Influenza like illness [Unknown]
  - Mental disorder [Unknown]
  - Cerebral disorder [Unknown]
  - Fear [Unknown]
  - Thyroid disorder [Unknown]
  - Sleep disorder [Unknown]
